FAERS Safety Report 21278585 (Version 1)
Quarter: 2022Q3

REPORT INFORMATION
  Report Type: Other
  Country: SI (occurrence: SI)
  Receive Date: 20220901
  Receipt Date: 20220901
  Transmission Date: 20221026
  Serious: Yes (Other)
  Sender: FDA-Public Use
  Company Number: SI-CELLTRION INC.-2022SI013848

PATIENT

DRUGS (6)
  1. RITUXIMAB [Suspect]
     Active Substance: RITUXIMAB
     Indication: Diffuse large B-cell lymphoma
     Dosage: UNK
     Route: 065
     Dates: start: 20220120, end: 20220329
  2. ETOPOSIDE [Suspect]
     Active Substance: ETOPOSIDE
     Indication: Diffuse large B-cell lymphoma
     Dosage: UNK
     Route: 065
     Dates: start: 20220120, end: 20220329
  3. CORTICOSTEROID NOS [Suspect]
     Active Substance: CORTICOSTEROID NOS
     Indication: Product used for unknown indication
     Dosage: UNK
     Route: 065
     Dates: start: 20220120, end: 20220329
  4. CYCLOPHOSPHAMIDE [Suspect]
     Active Substance: CYCLOPHOSPHAMIDE
     Indication: Diffuse large B-cell lymphoma
     Dosage: UNK
     Route: 065
     Dates: start: 20220120, end: 20220329
  5. PROCARBAZINE [Suspect]
     Active Substance: PROCARBAZINE
     Indication: Diffuse large B-cell lymphoma
     Dosage: UNK
     Route: 065
     Dates: start: 20220120, end: 20220329
  6. CARMUSTINE [Suspect]
     Active Substance: CARMUSTINE
     Indication: Diffuse large B-cell lymphoma
     Dosage: UNK
     Route: 065
     Dates: start: 20220120, end: 20220329

REACTIONS (2)
  - Disease progression [Unknown]
  - Product use issue [Unknown]

NARRATIVE: CASE EVENT DATE: 20220329
